FAERS Safety Report 16415335 (Version 1)
Quarter: 2019Q2

REPORT INFORMATION
  Report Type: Spontaneous
  Country: US (occurrence: US)
  Receive Date: 20190611
  Receipt Date: 20190611
  Transmission Date: 20190711
  Serious: No
  Sender: FDA-Public Use
  Company Number: US-SA-2019SA065993

PATIENT
  Age: 75 Year
  Sex: Female

DRUGS (15)
  1. LYRICA [Interacting]
     Active Substance: PREGABALIN
  2. DULOXETINE. [Concomitant]
     Active Substance: DULOXETINE
  3. NEXIUM I.V. [Concomitant]
     Active Substance: ESOMEPRAZOLE SODIUM
  4. TRAMADOL HYDROCHLORIDE. [Concomitant]
     Active Substance: TRAMADOL HYDROCHLORIDE
  5. LEVSIN [Concomitant]
     Active Substance: HYOSCYAMINE SULFATE
  6. IRON [Concomitant]
     Active Substance: IRON
  7. MEDROL [Concomitant]
     Active Substance: METHYLPREDNISOLONE
  8. LOSARTAN POTASSSIUM [Concomitant]
  9. ZOLOFT [Concomitant]
     Active Substance: SERTRALINE HYDROCHLORIDE
  10. RANITIDINE HCL [Concomitant]
     Active Substance: RANITIDINE HYDROCHLORIDE
  11. NITROSTAT [Concomitant]
     Active Substance: NITROGLYCERIN
  12. AUBAGIO [Suspect]
     Active Substance: TERIFLUNOMIDE
     Dosage: 1 DF, QD
     Route: 048
  13. METOPROLOL. [Concomitant]
     Active Substance: METOPROLOL
  14. AMLODIPINE [Concomitant]
     Active Substance: AMLODIPINE BESYLATE
  15. KLOR-CON M20 [Concomitant]
     Active Substance: POTASSIUM CHLORIDE

REACTIONS (1)
  - Product dose omission [Unknown]
